FAERS Safety Report 5925588-0 (Version None)
Quarter: 2008Q4

REPORT INFORMATION
  Report Type: 
  Country: None (occurrence: None)
  Receive Date: 20081021
  Receipt Date: 20081015
  Transmission Date: 20090506
  Serious: Yes (Hospitalization)
  Sender: FDA-Public Use
  Company Number: A0746403A

PATIENT
  Age: 10 Year
  Sex: Female
  Weight: 35 kg

DRUGS (2)
  1. AMOXICILLIN + CLAVULANATE POTASSIUM [Suspect]
     Indication: PNEUMONIA
     Dosage: 5.5ML THREE TIMES PER DAY
     Route: 048
     Dates: start: 20080828, end: 20080902
  2. NOVALGINA [Concomitant]
     Indication: DRUG USE FOR UNKNOWN INDICATION
     Dosage: 35DROP SEE DOSAGE TEXT
     Dates: start: 20080827

REACTIONS (4)
  - DRUG ADMINISTRATION ERROR [None]
  - PLEURAL EFFUSION [None]
  - PNEUMONIA [None]
  - UNDERDOSE [None]
